FAERS Safety Report 25526941 (Version 2)
Quarter: 2025Q3

REPORT INFORMATION
  Report Type: Report from Study
  Country: CL (occurrence: CL)
  Receive Date: 20250707
  Receipt Date: 20250827
  Transmission Date: 20251021
  Serious: Yes (Other)
  Sender: JOHNSON AND JOHNSON
  Company Number: CL-JNJFOC-20250704694

PATIENT
  Age: 40 Year
  Sex: Female

DRUGS (1)
  1. SIMPONI [Suspect]
     Active Substance: GOLIMUMAB
     Indication: Colitis ulcerative
     Route: 058
     Dates: start: 20250312

REACTIONS (2)
  - Cervix carcinoma [Unknown]
  - Colitis ulcerative [Unknown]
